FAERS Safety Report 13450015 (Version 1)
Quarter: 2017Q2

REPORT INFORMATION
  Report Type: Spontaneous
  Country: US (occurrence: US)
  Receive Date: 20170417
  Receipt Date: 20170417
  Transmission Date: 20170830
  Serious: No
  Sender: FDA-Public Use
  Company Number: US-BION-20160503

PATIENT
  Age: 76 Year
  Sex: Male
  Weight: 104.33 kg

DRUGS (1)
  1. ALEVE [Suspect]
     Active Substance: NAPROXEN SODIUM
     Indication: ARTHRALGIA
     Dosage: 1 DF QD, SINCE 1996
     Route: 048
     Dates: start: 2012

REACTIONS (1)
  - Incorrect drug administration duration [Unknown]
